FAERS Safety Report 10932797 (Version 1)
Quarter: 2015Q1

REPORT INFORMATION
  Report Type: Spontaneous
  Country: US (occurrence: None)
  Receive Date: 20150319
  Receipt Date: 20150319
  Transmission Date: 20150721
  Serious: No
  Sender: FDA-Public Use
  Company Number: None

PATIENT
  Age: 58 Year
  Sex: Female
  Weight: 108.86 kg

DRUGS (9)
  1. PRIMIDONE. [Suspect]
     Active Substance: PRIMIDONE
     Indication: TREMOR
     Dosage: BY MOUTH
     Dates: start: 20150215
  2. OMEPRAZOLE. [Concomitant]
     Active Substance: OMEPRAZOLE
  3. NAPROXEN. [Concomitant]
     Active Substance: NAPROXEN
  4. CYCLOBENZAPRINE [Concomitant]
     Active Substance: CYCLOBENZAPRINE
  5. SIMVASTATIN. [Concomitant]
     Active Substance: SIMVASTATIN
  6. CENTRUM [Concomitant]
     Active Substance: VITAMINS
  7. VENLAFAXINE [Concomitant]
     Active Substance: VENLAFAXINE HYDROCHLORIDE
  8. PRIMIDONE. [Suspect]
     Active Substance: PRIMIDONE
  9. ALAVERT ALLERGY [Concomitant]
     Active Substance: LORATADINE

REACTIONS (1)
  - Therapeutic response unexpected [None]

NARRATIVE: CASE EVENT DATE: 20150215
